FAERS Safety Report 13317037 (Version 1)
Quarter: 2017Q1

REPORT INFORMATION
  Report Type: Report from Study
  Country: CA (occurrence: CA)
  Receive Date: 20170310
  Receipt Date: 20170310
  Transmission Date: 20170428
  Serious: Yes (Other)
  Sender: FDA-Public Use
  Company Number: CA-AMGEN-CANSL2017035194

PATIENT
  Age: 48 Year
  Sex: Male

DRUGS (3)
  1. ENBREL [Suspect]
     Active Substance: ETANERCEPT
     Indication: ANKYLOSING SPONDYLITIS
     Dosage: 50 MG, UNK
     Route: 065
     Dates: start: 20161024
  2. SIMVASTATIN. [Concomitant]
     Active Substance: SIMVASTATIN
     Dosage: 10 MG, UNK
  3. SIMVASTATIN. [Concomitant]
     Active Substance: SIMVASTATIN
     Dosage: 20 MG, UNK

REACTIONS (12)
  - Dyspnoea [Unknown]
  - Skin discolouration [Unknown]
  - Cyst [Unknown]
  - Chest discomfort [Unknown]
  - Cerebrovascular accident [Unknown]
  - Dry mouth [Unknown]
  - Malaise [Unknown]
  - Dry throat [Unknown]
  - Respiratory tract congestion [Unknown]
  - Head discomfort [Unknown]
  - Rash papular [Unknown]
  - Paranasal sinus discomfort [Unknown]

NARRATIVE: CASE EVENT DATE: 2016
